FAERS Safety Report 16965888 (Version 1)
Quarter: 2019Q4

REPORT INFORMATION
  Report Type: Spontaneous
  Country: US (occurrence: US)
  Receive Date: 20191028
  Receipt Date: 20191028
  Transmission Date: 20200122
  Serious: No
  Sender: FDA-Public Use
  Company Number: US-PFIZER INC-2019458313

PATIENT
  Age: 77 Year
  Sex: Female
  Weight: 78.47 kg

DRUGS (1)
  1. TIKOSYN [Suspect]
     Active Substance: DOFETILIDE
     Indication: ARRHYTHMIA PROPHYLAXIS
     Dosage: 1 IN THE MORNING AND 1 IN THE EVENING (8AM AND 8 PM)
     Route: 048
     Dates: start: 20191017

REACTIONS (2)
  - Hypersensitivity [Not Recovered/Not Resolved]
  - Dyspnoea [Not Recovered/Not Resolved]

NARRATIVE: CASE EVENT DATE: 20191020
